FAERS Safety Report 15145575 (Version 2)
Quarter: 2018Q3

REPORT INFORMATION
  Report Type: Spontaneous
  Country: IT (occurrence: IT)
  Receive Date: 20180713
  Receipt Date: 20180726
  Transmission Date: 20181010
  Serious: Yes (Hospitalization)
  Sender: FDA-Public Use
  Company Number: IT-ALLERGAN-1835192US

PATIENT
  Age: 58 Year
  Sex: Female

DRUGS (1)
  1. CITALOPRAM HYDROBROMIDE ? BP [Suspect]
     Active Substance: CITALOPRAM HYDROBROMIDE
     Indication: DEPRESSION
     Dosage: 7 ML; IN TOTAL
     Route: 048
     Dates: start: 20180104, end: 20180104

REACTIONS (3)
  - Overdose [Unknown]
  - Disorientation [Unknown]
  - Agitation [Unknown]

NARRATIVE: CASE EVENT DATE: 20180104
